FAERS Safety Report 8460253-X (Version None)
Quarter: 2012Q2

REPORT INFORMATION
  Report Type: 
  Country: None (occurrence: None)
  Receive Date: 20120622
  Receipt Date: 20120614
  Transmission Date: 20120825
  Serious: Yes (Other)
  Sender: FDA-Public Use
  Company Number: PHHY2012US051356

PATIENT
  Sex: Male

DRUGS (3)
  1. VALPROIC ACID [Suspect]
     Dosage: 1500 MG/DAY
     Dates: start: 19890101
  2. VALPROIC ACID [Suspect]
     Indication: EPILEPSY
     Dates: start: 19880101
  3. VALPROIC ACID [Suspect]
     Dosage: 3500 MG/DAY
     Dates: start: 19890101, end: 19940601

REACTIONS (7)
  - AREFLEXIA [None]
  - SPERMATOGENESIS ABNORMAL [None]
  - SPERM CONCENTRATION DECREASED [None]
  - GINGIVAL HYPERTROPHY [None]
  - INFERTILITY [None]
  - SPERMATOZOA PROGRESSIVE MOTILITY DECREASED [None]
  - CONVULSION [None]
